FAERS Safety Report 4365737-1 (Version None)
Quarter: 2004Q2

REPORT INFORMATION
  Report Type: 
  Country: None (occurrence: None)
  Receive Date: 20040520
  Receipt Date: 20040511
  Transmission Date: 20050107
  Serious: Yes (Hospitalization, Disabling)
  Sender: FDA-Public Use
  Company Number: 2004-03-1609

PATIENT
  Age: 68 Year
  Sex: Male

DRUGS (11)
  1. VIRAFERONPEG [Suspect]
     Dosage: 80 QWK*
     Dates: start: 20040201
  2. VIRAFERONPEG [Suspect]
     Dosage: 80 QWK*
     Dates: start: 20040202
  3. VIRAFERONPEG [Suspect]
     Dosage: 80 QWK*
     Dates: start: 20040501
  4. AVLOCARDYL [Concomitant]
  5. LASILIX [Concomitant]
  6. TARDYFERON [Concomitant]
  7. PREVISCAN [Concomitant]
  8. ALDACTONE [Concomitant]
  9. RANIPLEX [Concomitant]
  10. FORADIL [Concomitant]
  11. BECLOMETHASONE DIPROPIONATE [Concomitant]

REACTIONS (4)
  - ASCITES [None]
  - FACE OEDEMA [None]
  - HYPONATRAEMIA [None]
  - OEDEMA PERIPHERAL [None]
